FAERS Safety Report 7394951-6 (Version None)
Quarter: 2011Q2

REPORT INFORMATION
  Report Type: 
  Country: None (occurrence: None)
  Receive Date: 20110405
  Receipt Date: 20110328
  Transmission Date: 20111010
  Serious: Yes (Hospitalization)
  Sender: FDA-Public Use
  Company Number: NL-TEVA-274282ISR

PATIENT
  Age: 63 Year
  Sex: Male

DRUGS (3)
  1. SUNITINIB [Interacting]
     Route: 048
  2. AMLODIPINE BESYLATE [Suspect]
     Indication: HYPERTENSION
  3. SUNITINIB [Interacting]
     Route: 048

REACTIONS (5)
  - DEPRESSION [None]
  - DRUG INTERACTION [None]
  - SLEEP DISORDER [None]
  - HALLUCINATION, VISUAL [None]
  - DELUSION [None]
